FAERS Safety Report 12610075 (Version 1)
Quarter: 2016Q3

REPORT INFORMATION
  Report Type: Spontaneous
  Country: US (occurrence: None)
  Receive Date: 20160729
  Receipt Date: 20160729
  Transmission Date: 20161109
  Serious: No
  Sender: FDA-Public Use
  Company Number: None

PATIENT
  Age: 29 Year
  Sex: Female
  Weight: 68.04 kg

DRUGS (1)
  1. FLUOXETINE HCL 40MG CAPSULE, 40 MG PAR PHARM [Suspect]
     Active Substance: FLUOXETINE HYDROCHLORIDE
     Indication: PERINATAL DEPRESSION
     Dosage: 1 CAPSULE(S) AT BEDTIME TAKEN BY MOUTH
     Route: 048
     Dates: start: 20160701

REACTIONS (3)
  - Dysgeusia [None]
  - Eructation [None]
  - Dyspepsia [None]

NARRATIVE: CASE EVENT DATE: 20160701
